FAERS Safety Report 12172609 (Version 1)
Quarter: 2016Q1

REPORT INFORMATION
  Report Type: Report from Study
  Country: BR (occurrence: BR)
  Receive Date: 20160311
  Receipt Date: 20160311
  Transmission Date: 20160526
  Serious: Yes (Death, Hospitalization, Other)
  Sender: FDA-Public Use
  Company Number: PHHY2016BR032215

PATIENT
  Age: 83 Year
  Sex: Male
  Weight: 76 kg

DRUGS (3)
  1. TEGRETOL CR [Suspect]
     Active Substance: CARBAMAZEPINE
     Indication: TRIGEMINAL NEURALGIA
     Dosage: 400 MG, Q12H
     Route: 048
     Dates: start: 201108, end: 20151129
  2. LIRICA [Concomitant]
     Active Substance: PREGABALIN
     Indication: TRIGEMINAL NEURALGIA
     Dosage: 150 MG, BID
     Route: 048
     Dates: end: 20151129
  3. TEGRETOL [Suspect]
     Active Substance: CARBAMAZEPINE
     Indication: TRIGEMINAL NEURALGIA
     Dosage: 200 MG, BID
     Route: 048
     Dates: end: 2011

REACTIONS (10)
  - Renal disorder [Fatal]
  - Arrhythmia [Unknown]
  - Drug ineffective [Unknown]
  - Femur fracture [Unknown]
  - Bladder disorder [Fatal]
  - Feeding disorder [Unknown]
  - Lung disorder [Fatal]
  - Pain [Unknown]
  - Blood glucose decreased [Unknown]
  - Ischaemia [Unknown]

NARRATIVE: CASE EVENT DATE: 201107
